FAERS Safety Report 9182824 (Version 1)
Quarter: 2013Q1

REPORT INFORMATION
  Report Type: Spontaneous
  Country: US (occurrence: US)
  Receive Date: 20130322
  Receipt Date: 20130322
  Transmission Date: 20140127
  Serious: Yes (Life-Threatening, Disabling)
  Sender: FDA-Public Use
  Company Number: US-BRISTOL-MYERS SQUIBB COMPANY-16401309

PATIENT
  Age: 58 Year
  Sex: Male

DRUGS (19)
  1. ERBITUX [Suspect]
     Indication: OROPHARYNGEAL CANCER
     Dosage: 1DF=400MG/M2=600MG IV X1 ON DAY 1.(60MG TEST DOSE).
     Route: 042
     Dates: start: 20120222, end: 20120222
  2. IRINOTECAN [Suspect]
     Indication: COLORECTAL CANCER METASTATIC
  3. VECTIBIX [Concomitant]
  4. DIPHENHYDRAMINE [Concomitant]
  5. FAMOTIDINE [Concomitant]
  6. DEXAMETHASONE [Concomitant]
  7. PROCHLORPERAZINE [Concomitant]
  8. GLUTAMINE [Concomitant]
  9. OMEPRAZOLE [Concomitant]
  10. DOCUSATE [Concomitant]
  11. MULTIVITAMIN [Concomitant]
  12. ASPIRIN [Concomitant]
  13. AMIODARONE [Concomitant]
  14. GABAPENTIN [Concomitant]
  15. METOPROLOL [Concomitant]
  16. SENNA [Concomitant]
  17. TRAZODONE HCL [Concomitant]
  18. OXYCODONE [Concomitant]
  19. LORAZEPAM [Concomitant]

REACTIONS (1)
  - Anaphylactic reaction [Recovered/Resolved]
